FAERS Safety Report 5641168-9 (Version None)
Quarter: 2008Q1

REPORT INFORMATION
  Report Type: 
  Country: None (occurrence: None)
  Receive Date: 20080227
  Receipt Date: 20070220
  Transmission Date: 20080703
  Serious: No
  Sender: FDA-Public Use
  Company Number: A0639953A

PATIENT
  Age: 36 Year
  Sex: Female

DRUGS (1)
  1. NICORETTE (MINT) [Suspect]

REACTIONS (8)
  - ABDOMINAL PAIN UPPER [None]
  - GASTROINTESTINAL DISORDER [None]
  - HEADACHE [None]
  - IMMOBILE [None]
  - INTENTIONAL DRUG MISUSE [None]
  - MIGRAINE [None]
  - POOR QUALITY SLEEP [None]
  - VOMITING [None]
